FAERS Safety Report 12983355 (Version 2)
Quarter: 2016Q4

REPORT INFORMATION
  Report Type: Report from Study
  Country: IL (occurrence: IL)
  Receive Date: 20161129
  Receipt Date: 20161230
  Transmission Date: 20170207
  Serious: Yes (Other)
  Sender: FDA-Public Use
  Company Number: IL-INCYTE CORPORATION-2016IN006824

PATIENT
  Age: 76 Year
  Sex: Male

DRUGS (3)
  1. JAKAVI [Suspect]
     Active Substance: RUXOLITINIB
     Indication: MYELOFIBROSIS
     Dosage: 20 MG, BID
     Route: 048
     Dates: start: 20150501
  2. JAKAVI [Suspect]
     Active Substance: RUXOLITINIB
     Dosage: 20 MG, QD
     Route: 048
     Dates: start: 201611
  3. JAKAVI [Suspect]
     Active Substance: RUXOLITINIB
     Dosage: 40 MG, QD
     Route: 065

REACTIONS (4)
  - Fall [Recovering/Resolving]
  - Haematoma [Recovering/Resolving]
  - Spinal fracture [Recovering/Resolving]
  - Back injury [Unknown]

NARRATIVE: CASE EVENT DATE: 20161106
